FAERS Safety Report 23153130 (Version 1)
Quarter: 2023Q4

REPORT INFORMATION
  Report Type: Spontaneous
  Country: US (occurrence: None)
  Receive Date: 20231106
  Receipt Date: 20231106
  Transmission Date: 20240110
  Serious: No
  Sender: FDA-Public Use
  Company Number: None

PATIENT
  Age: 56 Year
  Sex: Female
  Weight: 49.5 kg

DRUGS (6)
  1. PAXLOVID [Suspect]
     Active Substance: NIRMATRELVIR\RITONAVIR
     Indication: COVID-19
     Dosage: OTHER QUANTITY : 10 CAPSULE(S);?FREQUENCY : EVERY 12 HOURS;?
     Route: 048
  2. VITAMIN D3 [Concomitant]
     Active Substance: CHOLECALCIFEROL
  3. VITAMIN B [Concomitant]
     Active Substance: VITAMIN B
  4. VITAMIN C [Concomitant]
     Active Substance: ASCORBIC ACID
  5. Osteobiflex [Concomitant]
  6. CALCIUM [Concomitant]
     Active Substance: CALCIUM

REACTIONS (5)
  - Dysgeusia [None]
  - Diarrhoea [None]
  - Nausea [None]
  - Headache [None]
  - Dizziness [None]

NARRATIVE: CASE EVENT DATE: 20231104
